FAERS Safety Report 25503941 (Version 1)
Quarter: 2025Q3

REPORT INFORMATION
  Report Type: Spontaneous
  Country: US (occurrence: US)
  Receive Date: 20250702
  Receipt Date: 20250702
  Transmission Date: 20251021
  Serious: Yes (Death, Other)
  Sender: RANBAXY
  Company Number: US-SUN PHARMACEUTICAL INDUSTRIES LTD-2025R1-514415

PATIENT
  Age: 7 Decade
  Sex: Male

DRUGS (4)
  1. OXALIPLATIN [Suspect]
     Active Substance: OXALIPLATIN
     Indication: Acinar cell carcinoma of pancreas
     Route: 065
  2. IRINOTECAN [Suspect]
     Active Substance: IRINOTECAN
     Indication: Acinar cell carcinoma of pancreas
     Route: 065
  3. FLUOROURACIL [Suspect]
     Active Substance: FLUOROURACIL
     Indication: Acinar cell carcinoma of pancreas
     Route: 065
  4. TRASTUZUMAB [Suspect]
     Active Substance: TRASTUZUMAB
     Indication: Acinar cell carcinoma of pancreas
     Route: 065

REACTIONS (1)
  - Neoplasm progression [Fatal]
